FAERS Safety Report 9348949 (Version 1)
Quarter: 2013Q2

REPORT INFORMATION
  Report Type: Spontaneous
  Country: DE (occurrence: DE)
  Receive Date: 20130614
  Receipt Date: 20130614
  Transmission Date: 20140414
  Serious: Yes (Hospitalization)
  Sender: FDA-Public Use
  Company Number: DE-GE HEALTHCARE MEDICAL DIAGNOSTICS-OMPQ-PR-1306S-0715

PATIENT
  Age: 63 Year
  Sex: Male

DRUGS (21)
  1. ACCUPAQUE [Suspect]
     Indication: PRODUCT USED FOR UNKNOWN INDICATION
     Route: 013
     Dates: start: 20120419, end: 20120419
  2. ACCUPAQUE [Suspect]
     Indication: DIAGNOSTIC PROCEDURE
  3. ASS [Concomitant]
     Dates: start: 20060424
  4. BISOPROLOL [Concomitant]
     Dates: start: 20090218
  5. RAMIPRIL [Concomitant]
     Dates: start: 20060424
  6. TORASEMIDE [Concomitant]
     Dates: start: 20100215
  7. AMLODIPIN [Concomitant]
     Dates: start: 20111219
  8. SIMVASTATIN [Concomitant]
     Dates: start: 20111219
  9. EZETIMIBE [Concomitant]
     Dates: start: 20111219
  10. NICOTINIC ACID [Concomitant]
     Dates: start: 20111219
  11. LAROPIPRANT [Concomitant]
     Dates: start: 20111219
  12. GABAPENTIN [Concomitant]
     Dates: start: 20120229
  13. STANGYL [Concomitant]
     Dates: start: 20100715
  14. TRAMADOLOR [Concomitant]
     Dates: start: 20120229
  15. BLEMAREN [Concomitant]
     Dates: start: 20120411
  16. LIPROLOG [Concomitant]
     Dates: start: 20120327
  17. LANTUS [Concomitant]
     Dates: start: 20120327
  18. METAMIZOLE [Concomitant]
     Dates: start: 20120229, end: 20120420
  19. ACC [Concomitant]
     Dates: start: 20120420, end: 20120423
  20. ASPIRIN [Concomitant]
  21. CLOPIDOGREL [Concomitant]

REACTIONS (1)
  - Renal failure [Recovered/Resolved]
